FAERS Safety Report 19128176 (Version 3)
Quarter: 2021Q2

REPORT INFORMATION
  Report Type: Spontaneous
  Country: US (occurrence: US)
  Receive Date: 20210413
  Receipt Date: 20210602
  Transmission Date: 20210717
  Serious: No
  Sender: FDA-Public Use
  Company Number: US-MILLICENT HOLDINGS LTD.-MILL20210052

PATIENT
  Age: 56 Year
  Sex: Female
  Weight: 59.02 kg

DRUGS (5)
  1. ESTRACE [Concomitant]
     Active Substance: ESTRADIOL
     Dosage: 0.1 MG
     Route: 061
  2. ALBUTEROL. [Concomitant]
     Active Substance: ALBUTEROL
  3. FEMRING [Suspect]
     Active Substance: ESTRADIOL ACETATE
     Indication: HORMONE REPLACEMENT THERAPY
     Dosage: 0.10 MG/DAY
     Route: 067
     Dates: start: 2014
  4. FEMRING [Suspect]
     Active Substance: ESTRADIOL ACETATE
     Indication: MIGRAINE PROPHYLAXIS
  5. COMPOUNDED TESTOSTERONE [Concomitant]
     Active Substance: TESTOSTERONE
     Indication: HORMONE REPLACEMENT THERAPY
     Dates: start: 2006

REACTIONS (3)
  - Intentional product use issue [None]
  - Product use in unapproved indication [None]
  - Therapeutic product effect decreased [Not Recovered/Not Resolved]

NARRATIVE: CASE EVENT DATE: 2014
